FAERS Safety Report 24357938 (Version 1)
Quarter: 2024Q3

REPORT INFORMATION
  Report Type: Spontaneous
  Country: US (occurrence: None)
  Receive Date: 20240923
  Receipt Date: 20240923
  Transmission Date: 20241017
  Serious: Yes (Hospitalization)
  Sender: Public
  Company Number: None

PATIENT
  Age: 69 Year
  Sex: Male
  Weight: 87.5 kg

DRUGS (2)
  1. BREYANZI [Suspect]
     Active Substance: LISOCABTAGENE MARALEUCEL
     Indication: Mantle cell lymphoma
     Dosage: 1 DF DOSAGE FORM INTRAVENOUS?
     Route: 042
     Dates: start: 20240730, end: 20240730
  2. DEXAMETHASONE [Suspect]
     Active Substance: DEXAMETHASONE

REACTIONS (6)
  - Coagulopathy [None]
  - Hypertension [None]
  - Pyrexia [None]
  - Neurotoxicity [None]
  - Blood fibrinogen decreased [None]
  - Hyperglycaemia [None]

NARRATIVE: CASE EVENT DATE: 20240809
